FAERS Safety Report 10955717 (Version 3)
Quarter: 2015Q2

REPORT INFORMATION
  Report Type: Report from Study
  Country: US (occurrence: None)
  Receive Date: 20150324
  Receipt Date: 20150504
  Transmission Date: 20150821
  Serious: Yes (Hospitalization)
  Sender: FDA-Public Use
  Company Number: US-001736

PATIENT
  Sex: Female

DRUGS (8)
  1. AMBIEN [Concomitant]
     Active Substance: ZOLPIDEM TARTRATE
  2. FENTANYL TRANSDERMAL SYSTEM ? [Concomitant]
  3. SOLUTIONS FOR PARENTERAL NUTRITON [Concomitant]
  4. VALIUM [Concomitant]
     Active Substance: DIAZEPAM
  5. BENADRYL [Concomitant]
     Active Substance: DIPHENHYDRAMINE HYDROCHLORIDE
  6. GATTEX [Suspect]
     Active Substance: TEDUGLUTIDE\WATER
     Indication: SHORT-BOWEL SYNDROME
     Dosage: DF
     Route: 058
  7. ZOFRAN /00955301/ [Concomitant]
     Active Substance: ONDANSETRON HYDROCHLORIDE
  8. PREDNISONE. [Concomitant]
     Active Substance: PREDNISONE

REACTIONS (12)
  - Pyrexia [None]
  - Abdominal pain [None]
  - Nausea [None]
  - Haematuria [None]
  - Device related infection [None]
  - Sleep disorder [None]
  - Crohn^s disease [None]
  - Staphylococcal infection [None]
  - Injection site pain [None]
  - Vomiting [None]
  - Splenomegaly [None]
  - Chills [None]
